FAERS Safety Report 6247195-5 (Version None)
Quarter: 2009Q2

REPORT INFORMATION
  Report Type: 
  Country: None (occurrence: None)
  Receive Date: 20090626
  Receipt Date: 20090615
  Transmission Date: 20091009
  Serious: Yes (Other)
  Sender: FDA-Public Use
  Company Number: CA-PFIZER INC-2009227187

PATIENT
  Age: 70 Year

DRUGS (3)
  1. ZELDOX [Suspect]
     Dosage: 20 MG, 2X/DAY
     Dates: start: 20090526, end: 20090612
  2. ZELDOX [Suspect]
     Dosage: 60 MG, 2X/DAY
     Dates: end: 20090612
  3. OLANZAPINE [Suspect]
     Dosage: UNK
     Dates: end: 20090604

REACTIONS (3)
  - DYSPNOEA [None]
  - GENERALISED OEDEMA [None]
  - WEIGHT INCREASED [None]
